FAERS Safety Report 9373668 (Version 1)
Quarter: 2013Q2

REPORT INFORMATION
  Report Type: Spontaneous
  Country: US (occurrence: US)
  Receive Date: 20130627
  Receipt Date: 20130627
  Transmission Date: 20140414
  Serious: Yes (Other)
  Sender: FDA-Public Use
  Company Number: US-TEVA-415367USA

PATIENT
  Age: 53 Year
  Sex: Female

DRUGS (7)
  1. IDARUBICIN [Suspect]
     Indication: ACUTE MYELOID LEUKAEMIA
     Route: 065
  2. HYDROXYCARBAMIDE [Suspect]
     Indication: ACUTE MYELOID LEUKAEMIA
     Route: 065
  3. CYTARABINE [Suspect]
     Indication: ACUTE MYELOID LEUKAEMIA
     Route: 065
  4. CEFEPIME [Concomitant]
     Indication: PNEUMONIA
     Route: 065
  5. VANCOMYCIN [Concomitant]
     Indication: PNEUMONIA
     Route: 065
  6. FLUCONAZOLE [Concomitant]
     Indication: PNEUMONIA
     Route: 065
  7. FAMCICLOVIR [Concomitant]
     Indication: PNEUMONIA
     Route: 065

REACTIONS (1)
  - Acute febrile neutrophilic dermatosis [Recovered/Resolved]
